FAERS Safety Report 4296391-5 (Version None)
Quarter: 2004Q1

REPORT INFORMATION
  Report Type: 
  Country: None (occurrence: None)
  Receive Date: 20040212
  Receipt Date: 20040209
  Transmission Date: 20041129
  Serious: Yes (Hospitalization, Other)
  Sender: FDA-Public Use
  Company Number: 200311412BVD

PATIENT
  Age: 78 Year
  Sex: Male
  Weight: 52 kg

DRUGS (10)
  1. AVELOX [Suspect]
     Indication: PNEUMONIA
     Dosage: 400 MG, TOTAL DAILY, ORAL
     Route: 048
     Dates: start: 20031110
  2. ASS [Concomitant]
  3. AMITRIPTYLINE HCL [Concomitant]
  4. BISOPROLOL [Concomitant]
  5. DIGIMERCK MINOR [Concomitant]
  6. ARELIX ^AVENTIS PHARMA^ [Concomitant]
  7. BENAZEPRIL HCL [Concomitant]
  8. PARIET [Concomitant]
  9. METHYLPREDNISOLONE [Concomitant]
  10. VIANI [Concomitant]

REACTIONS (1)
  - RENAL FAILURE ACUTE [None]
